FAERS Safety Report 16611958 (Version 1)
Quarter: 2019Q3

REPORT INFORMATION
  Report Type: Spontaneous
  Country: CA (occurrence: CA)
  Receive Date: 20190722
  Receipt Date: 20190722
  Transmission Date: 20191004
  Serious: Yes (Hospitalization, Other)
  Sender: FDA-Public Use
  Company Number: CA-JNJFOC-20190720943

PATIENT
  Age: 79 Year
  Sex: Male
  Weight: 64.4 kg

DRUGS (4)
  1. RIVAROXABAN [Suspect]
     Active Substance: RIVAROXABAN
     Indication: ATRIAL FIBRILLATION
     Dosage: 20.0 MG, QD
     Route: 048
  2. ASA [Concomitant]
     Active Substance: ASPIRIN
     Dosage: UNK
  3. ESCITALOPRAM [Concomitant]
     Active Substance: ESCITALOPRAM OXALATE
     Route: 048
  4. RABEPRAZOLE [Concomitant]
     Active Substance: RABEPRAZOLE

REACTIONS (15)
  - Confusional state [Unknown]
  - Depressed level of consciousness [Unknown]
  - Major depression [Unknown]
  - Dementia with Lewy bodies [Unknown]
  - Aphasia [Unknown]
  - Loss of personal independence in daily activities [Unknown]
  - Dementia [Unknown]
  - Seizure like phenomena [Unknown]
  - Anxiety [Unknown]
  - Obsessive thoughts [Unknown]
  - Streptococcus test positive [Unknown]
  - Delirium [Unknown]
  - Seizure [Unknown]
  - Abnormal behaviour [Unknown]
  - Memory impairment [Unknown]
